FAERS Safety Report 7092951-7 (Version None)
Quarter: 2010Q4

REPORT INFORMATION
  Report Type: 
  Country: None (occurrence: None)
  Receive Date: 20101110
  Receipt Date: 20101102
  Transmission Date: 20110411
  Serious: No
  Sender: FDA-Public Use
  Company Number: US-PFIZER INC-2010140160

PATIENT

DRUGS (2)
  1. ZITHROMAX [Suspect]
     Indication: EAR INFECTION
     Route: 048
  2. ZITHROMAX [Suspect]
     Indication: UPPER RESPIRATORY TRACT INFECTION

REACTIONS (1)
  - DRUG INEFFECTIVE [None]
